FAERS Safety Report 13781678 (Version 1)
Quarter: 2017Q3

REPORT INFORMATION
  Report Type: Spontaneous
  Country: GB (occurrence: GB)
  Receive Date: 20170724
  Receipt Date: 20170724
  Transmission Date: 20171127
  Serious: Yes (Other)
  Sender: FDA-Public Use
  Company Number: GB-PFIZER INC-3107067

PATIENT
  Sex: Male
  Weight: 90 kg

DRUGS (3)
  1. BAXTER SALINE [Suspect]
     Active Substance: SODIUM CHLORIDE
     Indication: MEDICATION DILUTION
     Dosage: 49 ML, FREQ: 5 WEEK; INTERVAL 1
     Route: 058
     Dates: start: 20151201
  2. WATER FOR INJECTION [Suspect]
     Active Substance: WATER
     Indication: MEDICATION DILUTION
     Dosage: UNK
     Route: 065
  3. DEFEROXAMINE MESILATE [Suspect]
     Active Substance: DEFEROXAMINE MESYLATE
     Indication: IRON OVERLOAD
     Dosage: 1.5 G, FOR 5 NIGHTS, FREQ: 5 WEEK; INTERVAL: 1
     Route: 058
     Dates: start: 20151023

REACTIONS (5)
  - Red blood cell count decreased [Unknown]
  - Off label use [Unknown]
  - Cardiac failure congestive [Recovering/Resolving]
  - Nausea [Recovered/Resolved]
  - Infusion site pruritus [Recovered/Resolved]

NARRATIVE: CASE EVENT DATE: 20151023
